FAERS Safety Report 6892661-2 (Version None)
Quarter: 2010Q3

REPORT INFORMATION
  Report Type: 
  Country: None (occurrence: None)
  Receive Date: 20100731
  Receipt Date: 20080813
  Transmission Date: 20110219
  Serious: No
  Sender: FDA-Public Use
  Company Number: US-PFIZER INC-2008067265

PATIENT
  Sex: Male

DRUGS (1)
  1. CAVERJECT [Suspect]
     Dates: start: 19980101

REACTIONS (1)
  - DRUG INEFFECTIVE [None]
